FAERS Safety Report 23565567 (Version 3)
Quarter: 2024Q1

REPORT INFORMATION
  Report Type: Spontaneous
  Country: BR (occurrence: BR)
  Receive Date: 20240226
  Receipt Date: 20240329
  Transmission Date: 20240410
  Serious: Yes (Other)
  Sender: FDA-Public Use
  Company Number: BR-BoehringerIngelheim-2024-BI-009414

PATIENT
  Age: 62 Year
  Sex: Male
  Weight: 82 kg

DRUGS (7)
  1. JARDIANCE [Suspect]
     Active Substance: EMPAGLIFLOZIN
     Indication: Type 2 diabetes mellitus
     Dosage: ONE TABLET A DAY ORALLY AFTER BREAKFAST
     Route: 048
     Dates: start: 2019
  2. METFORMIN HYDROCHLORIDE [Concomitant]
     Active Substance: METFORMIN HYDROCHLORIDE
     Indication: Glucose tolerance impaired
     Dosage: ONE TABLET IN THE MORNING (WITH JARDIANCE) AND ONE TABLET AFTER DINNER.
     Route: 048
  3. HYDROCHLOROTHIAZIDE [Concomitant]
     Active Substance: HYDROCHLOROTHIAZIDE
     Indication: Blood pressure abnormal
     Dosage: ONE TABLET A DAY IN THE MORNING.
     Route: 048
  4. ATENOLOL [Concomitant]
     Active Substance: ATENOLOL
     Indication: Blood pressure abnormal
     Dosage: ONE TABLET A DAY IN THE MORNING.
     Route: 048
  5. ROSUVASTATIN [Concomitant]
     Active Substance: ROSUVASTATIN
     Indication: Product used for unknown indication
     Dosage: ONE TABLET A DAY AFTER DINNER
     Route: 048
  6. CARBONATO DE CALCIO [Concomitant]
     Indication: Drug therapy
     Dosage: TWO CAPSULES A DAY.
     Route: 048
     Dates: start: 2017
  7. Litocit [Concomitant]
     Indication: Drug therapy
     Dosage: FORM STRENGTH: 10 MEGA (PATIENT VERBALIZED AS ^MEGA^).?ONE TABLET A DAY ORALLY IN THE MORNING.
     Route: 048
     Dates: start: 2017

REACTIONS (16)
  - Basal cell carcinoma [Not Recovered/Not Resolved]
  - Wound [Not Recovered/Not Resolved]
  - Wound haemorrhage [Recovered/Resolved]
  - Discouragement [Not Recovered/Not Resolved]
  - Stress [Not Recovered/Not Resolved]
  - Malaise [Not Recovered/Not Resolved]
  - Anxiety [Not Recovered/Not Resolved]
  - Weight decreased [Not Recovered/Not Resolved]
  - Depression [Not Recovered/Not Resolved]
  - Asthenia [Not Recovered/Not Resolved]
  - Wound [Recovered/Resolved]
  - Accident [Recovered/Resolved]
  - Nephrolithiasis [Unknown]
  - Vitamin D deficiency [Not Recovered/Not Resolved]
  - Tissue infiltration [Recovered/Resolved]
  - Therapeutic response unexpected [Not Recovered/Not Resolved]

NARRATIVE: CASE EVENT DATE: 20190101
